FAERS Safety Report 4899759-9 (Version None)
Quarter: 2006Q1

REPORT INFORMATION
  Report Type: 
  Country: None (occurrence: None)
  Receive Date: 20060131
  Receipt Date: 20060123
  Transmission Date: 20060701
  Serious: Yes (Other)
  Sender: FDA-Public Use
  Company Number: 2006012175

PATIENT
  Age: 39 Year
  Sex: Female
  Weight: 90.7194 kg

DRUGS (4)
  1. ZOLOFT [Suspect]
     Indication: ANXIETY
     Dosage: 50 MG (50 MG, 1 IN 1 D),
     Dates: start: 20060101
  2. TOPAMAX [Concomitant]
  3. SYNTHROID [Concomitant]
  4. PROTONIX [Concomitant]

REACTIONS (6)
  - ABDOMINAL DISCOMFORT [None]
  - ABDOMINAL DISTENSION [None]
  - CATHETER RELATED COMPLICATION [None]
  - DYSURIA [None]
  - MESENTERIC PANNICULITIS [None]
  - URINARY TRACT DISORDER [None]
